FAERS Safety Report 15320738 (Version 3)
Quarter: 2020Q3

REPORT INFORMATION
  Report Type: Spontaneous
  Country: AT (occurrence: AT)
  Receive Date: 20180827
  Receipt Date: 20200721
  Transmission Date: 20201102
  Serious: Yes (Death, Life-Threatening, Hospitalization, Other)
  Sender: FDA-Public Use
  Company Number: PHHY2018AT077665

PATIENT
  Age: 76 Year
  Sex: Male

DRUGS (39)
  1. TACROLIMUS. [Suspect]
     Active Substance: TACROLIMUS
     Indication: IMMUNOSUPPRESSION
     Dosage: 0.1 MG/KG BODY WEIGHT
     Route: 065
  2. ANIDULAFUNGIN [Concomitant]
     Active Substance: ANIDULAFUNGIN
     Indication: ANTIFUNGAL PROPHYLAXIS
     Dosage: 100 MG, QD
     Route: 051
  3. GENTAMICIN. [Concomitant]
     Active Substance: GENTAMICIN
     Indication: ENTEROCOCCAL INFECTION
  4. LINEZOLID. [Concomitant]
     Active Substance: LINEZOLID
     Indication: PROPHYLAXIS
     Dosage: UNK
     Route: 065
  5. SULFAMETROLE SODIUM [Concomitant]
     Indication: STAPHYLOCOCCAL INFECTION
  6. SULFAMETROLE SODIUM [Concomitant]
     Indication: ENTEROCOCCAL INFECTION
  7. MEROPENEM. [Concomitant]
     Active Substance: MEROPENEM
     Indication: PROPHYLAXIS
     Dosage: UNK
     Route: 065
  8. CEFEPIME [Concomitant]
     Active Substance: CEFEPIME HYDROCHLORIDE
     Indication: ENTEROCOCCAL INFECTION
  9. FILGRASTIM [Concomitant]
     Active Substance: FILGRASTIM
     Indication: NEUTROPENIA
     Dosage: (48 MIO IU/DAY)
     Route: 058
  10. TACROLIMUS. [Suspect]
     Active Substance: TACROLIMUS
     Dosage: 50 MG, QD?0.6 MG/KG ON POSTOPERATIVE DAY FOLLOWED BY TAPERING
     Route: 065
  11. AMPHOTERICIN B. [Concomitant]
     Active Substance: AMPHOTERICIN B
     Indication: ANTIFUNGAL PROPHYLAXIS
     Dosage: 10 MG, TID
     Route: 055
  12. MEROPENEM. [Concomitant]
     Active Substance: MEROPENEM
     Indication: ENTEROCOCCAL INFECTION
  13. GENTAMICIN. [Concomitant]
     Active Substance: GENTAMICIN
     Indication: STAPHYLOCOCCAL INFECTION
  14. CEFEPIME [Concomitant]
     Active Substance: CEFEPIME HYDROCHLORIDE
     Indication: STAPHYLOCOCCAL INFECTION
  15. CIPROFLOXACIN. [Concomitant]
     Active Substance: CIPROFLOXACIN
     Indication: PROPHYLAXIS
     Dosage: UNK
     Route: 065
  16. TEICOPLANIN [Concomitant]
     Active Substance: TEICOPLANIN
     Indication: PROPHYLAXIS
     Dosage: UNK
     Route: 065
  17. TEICOPLANIN [Concomitant]
     Active Substance: TEICOPLANIN
     Indication: STAPHYLOCOCCAL INFECTION
  18. SULFAMETROLE SODIUM [Concomitant]
     Indication: PROPHYLAXIS
     Dosage: UNK
     Route: 065
  19. PIPERACILLIN SODIUM [Concomitant]
     Active Substance: PIPERACILLIN SODIUM
     Indication: STAPHYLOCOCCAL INFECTION
  20. PREDNISOLONE. [Suspect]
     Active Substance: PREDNISOLONE
     Indication: IMMUNOSUPPRESSION
     Dosage: UNK (15 MG/DAY, 50 MG/D?0.6 MG/KG ON POSTOPERATIVE DAY FOLLOWED BY TAPERING)
     Route: 065
  21. AVIBACTAM SODIUM. [Concomitant]
     Active Substance: AVIBACTAM SODIUM
     Indication: PROPHYLAXIS
     Dosage: UNK
     Route: 065
  22. PIPERACILLIN SODIUM [Concomitant]
     Active Substance: PIPERACILLIN SODIUM
     Indication: PROPHYLAXIS
     Dosage: UNK
     Route: 065
  23. PIPERACILLIN SODIUM [Concomitant]
     Active Substance: PIPERACILLIN SODIUM
     Indication: ENTEROCOCCAL INFECTION
  24. VORICONAZOLE. [Suspect]
     Active Substance: VORICONAZOLE
     Indication: ANTIFUNGAL TREATMENT
     Dosage: 300 MG, BID
     Route: 065
  25. MEROPENEM. [Concomitant]
     Active Substance: MEROPENEM
     Indication: STAPHYLOCOCCAL INFECTION
  26. CEFEPIME [Concomitant]
     Active Substance: CEFEPIME HYDROCHLORIDE
     Indication: PROPHYLAXIS
     Dosage: UNK
     Route: 065
  27. AVIBACTAM SODIUM. [Concomitant]
     Active Substance: AVIBACTAM SODIUM
     Indication: ENTEROCOCCAL INFECTION
  28. GENTAMICIN. [Concomitant]
     Active Substance: GENTAMICIN
     Indication: PROPHYLAXIS
     Dosage: UNK
     Route: 065
  29. FLUCONAZOLE. [Concomitant]
     Active Substance: FLUCONAZOLE
     Indication: ANTIFUNGAL PROPHYLAXIS
     Dosage: 600 MG, QD
     Route: 051
  30. CIPROFLOXACIN. [Concomitant]
     Active Substance: CIPROFLOXACIN
     Indication: STAPHYLOCOCCAL INFECTION
  31. LINEZOLID. [Concomitant]
     Active Substance: LINEZOLID
     Indication: STAPHYLOCOCCAL INFECTION
  32. AVIBACTAM SODIUM. [Concomitant]
     Active Substance: AVIBACTAM SODIUM
     Indication: STAPHYLOCOCCAL INFECTION
  33. TACROLIMUS. [Suspect]
     Active Substance: TACROLIMUS
     Dosage: 15 MG, QD
     Route: 065
  34. CEFTOLOZANE SULFATE [Concomitant]
     Active Substance: CEFTOLOZANE SULFATE
     Indication: PROPHYLAXIS
     Dosage: UNK
     Route: 065
  35. CIPROFLOXACIN. [Concomitant]
     Active Substance: CIPROFLOXACIN
     Indication: ENTEROCOCCAL INFECTION
  36. TEICOPLANIN [Concomitant]
     Active Substance: TEICOPLANIN
     Indication: ENTEROCOCCAL INFECTION
  37. LINEZOLID. [Concomitant]
     Active Substance: LINEZOLID
     Indication: ENTEROCOCCAL INFECTION
  38. CEFTOLOZANE SULFATE [Concomitant]
     Active Substance: CEFTOLOZANE SULFATE
     Indication: ENTEROCOCCAL INFECTION
  39. CEFTOLOZANE SULFATE [Concomitant]
     Active Substance: CEFTOLOZANE SULFATE
     Indication: STAPHYLOCOCCAL INFECTION

REACTIONS (6)
  - Drug ineffective [Fatal]
  - Wound dehiscence [Not Recovered/Not Resolved]
  - Neutropenia [Unknown]
  - Purulent discharge [Not Recovered/Not Resolved]
  - Condition aggravated [Fatal]
  - Systemic mycosis [Fatal]
